FAERS Safety Report 9348716 (Version 1)
Quarter: 2013Q2

REPORT INFORMATION
  Report Type: Spontaneous
  Country: US (occurrence: US)
  Receive Date: 20130614
  Receipt Date: 20130614
  Transmission Date: 20140414
  Serious: No
  Sender: FDA-Public Use
  Company Number: US-GLAXOSMITHKLINE-A0988476A

PATIENT
  Age: 24 Year
  Sex: Male

DRUGS (2)
  1. TREXIMET [Suspect]
     Indication: MIGRAINE
     Route: 048
     Dates: start: 201206, end: 201206
  2. NO CONCURRENT MEDICATION [Concomitant]

REACTIONS (4)
  - Asthenia [Recovered/Resolved]
  - Presyncope [Unknown]
  - Pain [Unknown]
  - Ill-defined disorder [Unknown]
